FAERS Safety Report 7946740-9 (Version None)
Quarter: 2011Q4

REPORT INFORMATION
  Report Type: 
  Country: None (occurrence: None)
  Receive Date: 20111129
  Receipt Date: 20111119
  Transmission Date: 20120403
  Serious: Yes (Hospitalization, Other)
  Sender: FDA-Public Use
  Company Number: GXBR2011US005041

PATIENT
  Sex: Male
  Weight: 92.971 kg

DRUGS (2)
  1. AMIODARONE HYDROCHLORIDE [Suspect]
     Indication: HEART RATE INCREASED
     Dosage: 200 MG, QD2SDO
     Route: 048
     Dates: start: 20110923, end: 20111001
  2. AMIODARONE HYDROCHLORIDE [Suspect]
     Dosage: 200 MG, QD
     Route: 048
     Dates: start: 20111001, end: 20111026

REACTIONS (8)
  - URTICARIA [None]
  - DYSPHONIA [None]
  - THROAT TIGHTNESS [None]
  - OROPHARYNGEAL PAIN [None]
  - LOSS OF CONSCIOUSNESS [None]
  - DYSPNOEA [None]
  - DIZZINESS [None]
  - PRURITUS [None]
